FAERS Safety Report 5244279-5 (Version None)
Quarter: 2007Q1

REPORT INFORMATION
  Report Type: 
  Country: None (occurrence: None)
  Receive Date: 20070222
  Receipt Date: 20070202
  Transmission Date: 20070707
  Serious: Yes (Hospitalization, Disabling)
  Sender: FDA-Public Use
  Company Number: JP-MERCK-0609USA04261

PATIENT
  Sex: Male

DRUGS (1)
  1. PEPCID RPD [Suspect]
     Indication: GASTRITIS
     Route: 048
     Dates: start: 20020524, end: 20060912

REACTIONS (2)
  - PANCYTOPENIA [None]
  - RECTAL CANCER [None]
